FAERS Safety Report 6323094-5 (Version None)
Quarter: 2009Q3

REPORT INFORMATION
  Report Type: 
  Country: None (occurrence: None)
  Receive Date: 20090824
  Receipt Date: 20090320
  Transmission Date: 20100115
  Serious: No
  Sender: FDA-Public Use
  Company Number: US-ABBOTT-09P-163-0563949-00

PATIENT
  Sex: Female
  Weight: 99.88 kg

DRUGS (8)
  1. NIASPAN [Suspect]
     Indication: BLOOD CHOLESTEROL INCREASED
     Dates: start: 20090213
  2. NIASPAN [Suspect]
     Indication: BLOOD TRIGLYCERIDES INCREASED
  3. ASPIRIN [Concomitant]
     Indication: DRUG USE FOR UNKNOWN INDICATION
  4. LIPITOR [Concomitant]
     Indication: DRUG USE FOR UNKNOWN INDICATION
  5. SYNTHROID [Concomitant]
     Indication: DRUG USE FOR UNKNOWN INDICATION
  6. OMEPRAZOLE [Concomitant]
     Indication: DRUG USE FOR UNKNOWN INDICATION
  7. B12 COMPLEX [Concomitant]
     Indication: DRUG USE FOR UNKNOWN INDICATION
  8. OMEGA FISH OIL [Concomitant]
     Indication: DRUG USE FOR UNKNOWN INDICATION
     Dosage: BID/ TID WHEN SHE REMEMBERS

REACTIONS (2)
  - ERYTHEMA [None]
  - SKIN BURNING SENSATION [None]
